FAERS Safety Report 9897181 (Version 2)
Quarter: 2014Q1

REPORT INFORMATION
  Report Type: Spontaneous
  Country: JP (occurrence: JP)
  Receive Date: 20140214
  Receipt Date: 20140225
  Transmission Date: 20141002
  Serious: Yes (Other)
  Sender: FDA-Public Use
  Company Number: JP-AMGEN-JPNSP2014010446

PATIENT
  Age: 63 Year
  Sex: Female
  Weight: 77 kg

DRUGS (5)
  1. RANMARK [Suspect]
     Indication: METASTASES TO BONE
     Dosage: 120 MG, UNK
     Route: 058
     Dates: start: 20121210
  2. GEMZAR [Suspect]
     Indication: METASTASES TO BONE
     Dosage: 1000 MG/1000MG/TIMES, MONTHLY, ONCE A DAILY
     Route: 065
     Dates: start: 20131015
  3. NAVELBINE [Suspect]
     Indication: METASTASES TO BONE
     Dosage: 25 MG/25MG/TIMES, MONTHLY, ONCE A DAILY
     Route: 065
     Dates: start: 20131015
  4. GRANISETRON [Suspect]
     Indication: METASTASES TO BONE
     Dosage: 3MG/TIMES, MONTHLY, ONCE A DAILY
     Route: 065
     Dates: start: 20131015
  5. DEXART [Suspect]
     Indication: METASTASES TO BONE
     Dosage: 6.6MG/TIMES, MONTHLY, ONCE A DAILY, FOUR COURSES
     Route: 065
     Dates: start: 20131015

REACTIONS (1)
  - Osteonecrosis of jaw [Not Recovered/Not Resolved]
